FAERS Safety Report 4871534-0 (Version None)
Quarter: 2005Q4

REPORT INFORMATION
  Report Type: 
  Country: None (occurrence: None)
  Receive Date: 20051229
  Receipt Date: 20051209
  Transmission Date: 20060501
  Serious: Yes (Other)
  Sender: FDA-Public Use
  Company Number: US200512001893

PATIENT
  Sex: Female

DRUGS (2)
  1. HUMULIN L [Suspect]
     Indication: DIABETES MELLITUS
  2. ADVIL [Concomitant]

REACTIONS (7)
  - ARTHRALGIA [None]
  - BLOOD GLUCOSE FLUCTUATION [None]
  - BONE NEOPLASM MALIGNANT [None]
  - BREAST CANCER [None]
  - FATIGUE [None]
  - HEPATIC NEOPLASM MALIGNANT [None]
  - NEOPLASM RECURRENCE [None]
